FAERS Safety Report 9385057 (Version 2)
Quarter: 2013Q3

REPORT INFORMATION
  Report Type: Spontaneous
  Country: US (occurrence: US)
  Receive Date: 20130705
  Receipt Date: 20130816
  Transmission Date: 20140515
  Serious: Yes (Other)
  Sender: FDA-Public Use
  Company Number: US-UCBSA-090429

PATIENT
  Age: 76 Year
  Sex: Female

DRUGS (4)
  1. NEUPRO [Suspect]
     Indication: PARKINSON^S DISEASE
     Dosage: 2 MG
     Route: 062
     Dates: start: 20121029
  2. NEUPRO [Suspect]
     Indication: PARKINSON^S DISEASE
     Dosage: 4 MG
     Route: 062
     Dates: end: 2013
  3. NEUPRO [Suspect]
     Indication: PARKINSON^S DISEASE
     Dosage: DECREASED TO 2 MG
     Route: 062
     Dates: start: 20130526, end: 201306
  4. NEUPRO [Suspect]
     Indication: PARKINSON^S DISEASE
     Route: 062
     Dates: start: 20130622, end: 20130625

REACTIONS (1)
  - Application site rash [Unknown]
